FAERS Safety Report 13000726 (Version 1)
Quarter: 2016Q4

REPORT INFORMATION
  Report Type: Other
  Country: CA (occurrence: CA)
  Receive Date: 20161206
  Receipt Date: 20161206
  Transmission Date: 20170207
  Serious: Yes (Disabling)
  Sender: FDA-Public Use
  Company Number: CA-APOTEX-2016AP015064

PATIENT
  Age: 70 Year
  Sex: Female

DRUGS (1)
  1. APO-RISPERIDONE [Suspect]
     Active Substance: RISPERIDONE
     Indication: DELUSIONAL DISORDER, UNSPECIFIED TYPE
     Dosage: 2 MG, QD
     Route: 048

REACTIONS (2)
  - Product quality issue [Recovering/Resolving]
  - Condition aggravated [Recovering/Resolving]
